FAERS Safety Report 17317223 (Version 4)
Quarter: 2020Q1

REPORT INFORMATION
  Report Type: Spontaneous
  Country: US (occurrence: US)
  Receive Date: 20200124
  Receipt Date: 20200324
  Transmission Date: 20200409
  Serious: Yes (Hospitalization, Other)
  Sender: FDA-Public Use
  Company Number: US-SHIRE-US202001750

PATIENT
  Age: 56 Year
  Sex: Female

DRUGS (3)
  1. TAKHZYRO [Suspect]
     Active Substance: LANADELUMAB-FLYO
     Indication: HEREDITARY ANGIOEDEMA
     Dosage: 300 MILLIGRAM, EVERY 3 WK
     Route: 065
     Dates: start: 20181001
  2. KALBITOR [Suspect]
     Active Substance: ECALLANTIDE
     Indication: HEREDITARY ANGIOEDEMA
     Dosage: 30 MILLIGRAM
     Route: 065
  3. KALBITOR [Suspect]
     Active Substance: ECALLANTIDE
     Dosage: 30 MILLIGRAM, 18 VIALS THAT ARE 10 MG/ML
     Route: 065
     Dates: start: 20161128

REACTIONS (6)
  - Off label use [Unknown]
  - Obstructive airways disorder [Unknown]
  - Staphylococcal infection [Unknown]
  - Influenza [Unknown]
  - Hereditary angioedema [Unknown]
  - Joint injury [Unknown]

NARRATIVE: CASE EVENT DATE: 20200113
